FAERS Safety Report 6641412-5 (Version None)
Quarter: 2010Q1

REPORT INFORMATION
  Report Type: 
  Country: None (occurrence: None)
  Receive Date: 20100317
  Receipt Date: 20100317
  Transmission Date: 20100710
  Serious: Yes (Hospitalization)
  Sender: FDA-Public Use
  Company Number: None

PATIENT
  Age: 27 Year
  Sex: Male
  Weight: 76 kg

DRUGS (4)
  1. DICYCLOMINE [Suspect]
     Indication: IRRITABLE BOWEL SYNDROME
     Dosage: 10 MG QID
     Dates: start: 20081216, end: 20100120
  2. LORAZEPAM [Suspect]
     Indication: ANXIETY
     Dosage: 1 MG AT BEDTIME
     Dates: start: 20091202, end: 20100120
  3. LORAZEPAM [Suspect]
     Indication: BIPOLAR I DISORDER
     Dosage: 1 MG AT BEDTIME
     Dates: start: 20091202, end: 20100120
  4. LORAZEPAM [Suspect]
     Indication: POST-TRAUMATIC STRESS DISORDER
     Dosage: 1 MG AT BEDTIME
     Dates: start: 20091202, end: 20100120

REACTIONS (6)
  - AGITATION [None]
  - ALTERED STATE OF CONSCIOUSNESS [None]
  - ANTICHOLINERGIC SYNDROME [None]
  - DELIRIUM [None]
  - FUMBLING [None]
  - OVERDOSE [None]
